FAERS Safety Report 12090469 (Version 1)
Quarter: 2016Q1

REPORT INFORMATION
  Report Type: Spontaneous
  Country: US (occurrence: US)
  Receive Date: 20160218
  Receipt Date: 20160218
  Transmission Date: 20160526
  Serious: No
  Sender: FDA-Public Use
  Company Number: US-PERRIGO-15US005535

PATIENT
  Age: 46 Year
  Sex: Female
  Weight: 61.68 kg

DRUGS (2)
  1. CETIRIZINE HYDROCHLORIDE. [Suspect]
     Active Substance: CETIRIZINE HYDROCHLORIDE
     Indication: DRUG WITHDRAWAL SYNDROME
     Dosage: 1/2 TABLET, PRN
     Route: 048
     Dates: start: 20150510
  2. CETIRIZINE HYDROCHLORIDE. [Suspect]
     Active Substance: CETIRIZINE HYDROCHLORIDE
     Indication: SNEEZING
     Dosage: 10 MG, QD AT BEDTIME
     Route: 048
     Dates: start: 201412, end: 20150426

REACTIONS (7)
  - Dyspepsia [Unknown]
  - Drug withdrawal syndrome [Unknown]
  - Off label use [Unknown]
  - Incorrect dose administered [Unknown]
  - Pruritus [Unknown]
  - Diarrhoea [Unknown]
  - Wrong technique in product usage process [Unknown]

NARRATIVE: CASE EVENT DATE: 20150502
